FAERS Safety Report 7557060-9 (Version None)
Quarter: 2011Q2

REPORT INFORMATION
  Report Type: 
  Country: None (occurrence: None)
  Receive Date: 20110620
  Receipt Date: 20110606
  Transmission Date: 20111010
  Serious: Yes (Other)
  Sender: FDA-Public Use
  Company Number: LB-SANOFI-AVENTIS-2011SA022740

PATIENT
  Age: 47 Year
  Sex: Male

DRUGS (6)
  1. APO-RANITIDINE [Concomitant]
     Route: 042
     Dates: start: 20110203
  2. ELOXATIN [Suspect]
     Indication: COLON CANCER
     Route: 042
     Dates: start: 20110203, end: 20110203
  3. XELODA [Suspect]
     Route: 048
     Dates: start: 20110203
  4. DOMPERIDONE [Concomitant]
     Indication: ANTIEMETIC SUPPORTIVE CARE
     Route: 042
     Dates: start: 20110203
  5. ELOXATIN [Suspect]
     Route: 042
  6. GRANISETRON [Concomitant]
     Indication: ANTIEMETIC SUPPORTIVE CARE
     Route: 042
     Dates: start: 20110203

REACTIONS (1)
  - ANGINA PECTORIS [None]
